FAERS Safety Report 6689098-8 (Version None)
Quarter: 2010Q2

REPORT INFORMATION
  Report Type: 
  Country: None (occurrence: None)
  Receive Date: 20100420
  Receipt Date: 20100415
  Transmission Date: 20101027
  Serious: Yes (Death, Hospitalization)
  Sender: FDA-Public Use
  Company Number: TR-ABBOTT-10P-161-0638806-00

PATIENT
  Age: 19 Year
  Sex: Female

DRUGS (3)
  1. SODIUM VALPROATE [Suspect]
     Indication: CHOREA
     Dates: start: 20090622
  2. STREPTOMYCIN [Concomitant]
     Indication: CHOREA
     Dates: start: 20090622
  3. TETRADOX [Concomitant]
     Indication: BRUCELLOSIS
     Dates: start: 20090622

REACTIONS (2)
  - ACUTE HEPATIC FAILURE [None]
  - DRUG RASH WITH EOSINOPHILIA AND SYSTEMIC SYMPTOMS [None]
